FAERS Safety Report 5945423-4 (Version None)
Quarter: 2008Q4

REPORT INFORMATION
  Report Type: 
  Country: None (occurrence: None)
  Receive Date: 20081107
  Receipt Date: 20081028
  Transmission Date: 20090506
  Serious: Yes (Other)
  Sender: FDA-Public Use
  Company Number: GB-PFIZER INC-2008083890

PATIENT
  Age: 76 Year
  Sex: Male
  Weight: 88.9 kg

DRUGS (4)
  1. VIAGRA [Suspect]
     Indication: ERECTILE DYSFUNCTION
     Route: 048
  2. ARTHROTEC [Concomitant]
  3. OMEPRAZOLE [Concomitant]
  4. TAMSULOSIN HCL [Concomitant]
     Dates: start: 20051101

REACTIONS (3)
  - DRUG INEFFECTIVE [None]
  - HIP ARTHROPLASTY [None]
  - SYNCOPE [None]
